FAERS Safety Report 22174533 (Version 6)
Quarter: 2025Q3

REPORT INFORMATION
  Report Type: Spontaneous
  Country: US (occurrence: US)
  Receive Date: 20230405
  Receipt Date: 20250726
  Transmission Date: 20251021
  Serious: No
  Sender: SANOFI AVENTIS
  Company Number: US-SA-SAC20230403001125

PATIENT
  Age: 19 Year
  Sex: Female
  Weight: 113 kg

DRUGS (1)
  1. DUPIXENT [Suspect]
     Active Substance: DUPILUMAB
     Indication: Dermatitis atopic
     Dosage: 300 MG, QOW
     Route: 058

REACTIONS (6)
  - Dry skin [Unknown]
  - Blood pressure abnormal [Recovered/Resolved]
  - Heart rate abnormal [Recovered/Resolved]
  - Constipation [Unknown]
  - Dehydration [Unknown]
  - Injection site pain [Unknown]
